FAERS Safety Report 5858456-3 (Version None)
Quarter: 2008Q3

REPORT INFORMATION
  Report Type: 
  Country: None (occurrence: None)
  Receive Date: 20080826
  Receipt Date: 20080816
  Transmission Date: 20090109
  Serious: Yes (Death, Other)
  Sender: FDA-Public Use
  Company Number: US-PFIZER INC-2008057579

PATIENT
  Sex: Female
  Weight: 53.5 kg

DRUGS (5)
  1. LIPITOR [Suspect]
     Indication: HYPERLIPIDAEMIA
     Dates: start: 20060401, end: 20080701
  2. CHEMOTHERAPY NOS [Suspect]
     Indication: COLON CANCER
  3. LOPRESSOR [Concomitant]
     Indication: HYPERTENSION
  4. TRIAMTERENE [Concomitant]
  5. ZOFRAN [Concomitant]
     Indication: NAUSEA

REACTIONS (5)
  - ADVERSE DRUG REACTION [None]
  - ANAEMIA [None]
  - COLON CANCER [None]
  - DEEP VEIN THROMBOSIS [None]
  - PNEUMONIA [None]
